FAERS Safety Report 10750638 (Version 1)
Quarter: 2015Q1

REPORT INFORMATION
  Report Type: Spontaneous
  Country: US (occurrence: None)
  Receive Date: 20150126
  Receipt Date: 20150126
  Transmission Date: 20150721
  Serious: Yes (Death)
  Sender: FDA-Public Use
  Company Number: US-MDCO-14-00168

PATIENT
  Sex: Female
  Weight: 58.97 kg

DRUGS (1)
  1. ANGIOMAX [Suspect]
     Active Substance: BIVALIRUDIN
     Indication: PRODUCT USED FOR UNKNOWN INDICATION
     Route: 040
     Dates: start: 201407, end: 201407

REACTIONS (2)
  - Haematemesis [None]
  - Accidental overdose [None]

NARRATIVE: CASE EVENT DATE: 201407
